FAERS Safety Report 6528971-8 (Version None)
Quarter: 2010Q1

REPORT INFORMATION
  Report Type: 
  Country: None (occurrence: None)
  Receive Date: 20100106
  Receipt Date: 20060505
  Transmission Date: 20100710
  Serious: Yes (Disabling, Other)
  Sender: FDA-Public Use
  Company Number: US-MERCK-0602USA00297

PATIENT
  Age: 61 Year
  Sex: Female
  Weight: 74 kg

DRUGS (1)
  1. FOSAMAX [Suspect]
     Indication: OSTEOPOROSIS
     Route: 048
     Dates: start: 19970101, end: 20051201

REACTIONS (2)
  - ARTHROPATHY [None]
  - FEMUR FRACTURE [None]
